FAERS Safety Report 7885916-6 (Version None)
Quarter: 2011Q4

REPORT INFORMATION
  Report Type: 
  Country: None (occurrence: None)
  Receive Date: 20111102
  Receipt Date: 20110701
  Transmission Date: 20120403
  Serious: No
  Sender: FDA-Public Use
  Company Number: US-AMGEN-USASP2011033737

PATIENT
  Age: 57 Year
  Sex: Male

DRUGS (7)
  1. PREDNISONE [Concomitant]
     Dosage: 1 MG, UNK
  2. HYDROCODONE BITARTRATE AND ACETAMINOPHEN [Concomitant]
  3. ENBREL [Suspect]
     Indication: RHEUMATOID ARTHRITIS
     Dosage: 50 MG, QWK
     Route: 058
  4. GABAPENTIN [Concomitant]
  5. METHOTREXATE [Concomitant]
     Dosage: 2.5 MG, UNK
  6. FOLIC ACID [Concomitant]
     Dosage: 1 MG, UNK
  7. CELEXA [Concomitant]

REACTIONS (4)
  - INJECTION SITE RASH [None]
  - PRURITUS [None]
  - INJECTION SITE PRURITUS [None]
  - INJECTION SITE SWELLING [None]
